FAERS Safety Report 24557292 (Version 2)
Quarter: 2024Q4

REPORT INFORMATION
  Report Type: Spontaneous
  Country: FR (occurrence: FR)
  Receive Date: 20241028
  Receipt Date: 20241127
  Transmission Date: 20250114
  Serious: Yes (Hospitalization)
  Sender: MYLAN
  Company Number: None

PATIENT
  Age: 70 Year
  Sex: Male

DRUGS (19)
  1. CEFEPIME [Suspect]
     Active Substance: CEFEPIME HYDROCHLORIDE
     Indication: Antibiotic prophylaxis
     Dosage: 400 MILLIGRAM, QD
     Route: 042
     Dates: start: 20240908, end: 20240913
  2. ACETAMINOPHEN [Suspect]
     Active Substance: ACETAMINOPHEN
     Indication: Pyrexia
     Dosage: 3 GRAM, QD
     Route: 048
     Dates: start: 20240908, end: 20240913
  3. ACETAMINOPHEN [Suspect]
     Active Substance: ACETAMINOPHEN
     Dosage: 500 MILLIGRAM, QD
     Route: 048
     Dates: start: 20240915, end: 20240916
  4. PRAVASTATIN [Suspect]
     Active Substance: PRAVASTATIN
     Indication: Cardiovascular event prophylaxis
     Dosage: 20 MILLIGRAM, QD
     Route: 048
     Dates: start: 20170811, end: 20240913
  5. RISPERDAL [Suspect]
     Active Substance: RISPERIDONE
     Indication: Psychotic disorder
     Dosage: 6 MILLIGRAM, QD
     Route: 048
     Dates: start: 20220920, end: 20240913
  6. RISPERDAL [Suspect]
     Active Substance: RISPERIDONE
     Dosage: 1 MILLIGRAM, BID
     Route: 065
  7. RISPERDAL [Suspect]
     Active Substance: RISPERIDONE
     Dosage: 2 MILLIGRAM, BID
     Route: 065
  8. RISPERDAL [Suspect]
     Active Substance: RISPERIDONE
     Dosage: 3 MILLIGRAM, BID
     Route: 065
  9. LOXAPINE [Suspect]
     Active Substance: LOXAPINE
     Indication: Psychotic disorder
     Dosage: 200 MILLIGRAM, QD
     Route: 048
     Dates: start: 20220920, end: 20240913
  10. LOXAPINE [Suspect]
     Active Substance: LOXAPINE
     Dosage: 50 MILLIGRAM, TID (MORNING, NOON AND EVENING)
     Route: 065
  11. LOXAPINE [Suspect]
     Active Substance: LOXAPINE
     Dosage: 25 MILLIGRAM (MIDI)
     Route: 065
  12. TROPATEPINE HYDROCHLORIDE [Suspect]
     Active Substance: TROPATEPINE HYDROCHLORIDE
     Indication: Prophylaxis
     Dosage: 2 DOSAGE FORM, QD
     Route: 048
     Dates: start: 20220920, end: 20240913
  13. BRINTELLIX [Suspect]
     Active Substance: VORTIOXETINE HYDROBROMIDE
     Indication: Psychotic disorder
     Dosage: 1 DOSAGE FORM, QD (15 MG EVERY MORNING)
     Route: 048
     Dates: start: 20240120, end: 20240913
  14. PRAZEPAM [Concomitant]
     Active Substance: PRAZEPAM
     Dosage: 40 MILLIGRAM, QD
     Route: 048
     Dates: start: 20231227
  15. PRAZEPAM [Concomitant]
     Active Substance: PRAZEPAM
     Dosage: 10 MILLIGRAM, TID (MORNING, NOON, EVENING)
     Route: 065
  16. ABILIFY MAINTENA [Concomitant]
     Active Substance: ARIPIPRAZOLE
     Dosage: 1 DOSAGE FORM, 28D CYCLE (POWDER AND SOLVENT FOR PROLONGED RELEASE SUSPENSION FOR INJECTION)
     Route: 030
     Dates: start: 20230822
  17. ANETHOLTRITHION [Concomitant]
     Active Substance: ANETHOLTRITHION
     Dosage: 25 MILLIGRAM, TID (MORNING, NOON, EVENING)
     Route: 065
  18. MINERAL OIL [Concomitant]
     Active Substance: MINERAL OIL
     Dosage: 1 DOSAGE FORM, QD (1 DOSE IN THE EVENING)
     Route: 065
  19. LACTULOSE [Concomitant]
     Active Substance: LACTULOSE
     Dosage: UNK, TID (10G/15ML, 1 SACHET MORNING, NOON, EVENING)
     Route: 065

REACTIONS (3)
  - Hepatic cytolysis [Recovered/Resolved]
  - Rhabdomyolysis [Recovered/Resolved]
  - Acute kidney injury [Not Recovered/Not Resolved]

NARRATIVE: CASE EVENT DATE: 20240913
